FAERS Safety Report 5817706-X (Version None)
Quarter: 2008Q3

REPORT INFORMATION
  Report Type: 
  Country: None (occurrence: None)
  Receive Date: 20080722
  Receipt Date: 20080709
  Transmission Date: 20090109
  Serious: Yes (Hospitalization)
  Sender: FDA-Public Use
  Company Number: PHRM2008FR01464

PATIENT
  Sex: Male

DRUGS (4)
  1. EXJADE [Suspect]
     Indication: HAEMOCHROMATOSIS
     Dosage: UNK, UNK
     Route: 048
     Dates: start: 20061012, end: 20080325
  2. ORACILLINE [Concomitant]
     Dosage: 1 DF, BID
  3. FOLIC ACID [Concomitant]
     Dosage: 5 MG, 10 DAYS/MONTH
  4. VALPROIC ACID [Concomitant]
     Dosage: 250 MG, BID

REACTIONS (14)
  - ANOREXIA [None]
  - CAROTID ARTERY OCCLUSION [None]
  - HYPERPLASIA [None]
  - LYMPHADENOPATHY [None]
  - POLYP [None]
  - PYREXIA [None]
  - RED BLOOD CELL SEDIMENTATION RATE ABNORMAL [None]
  - SERUM FERRITIN ABNORMAL [None]
  - TUBERCULOSIS [None]
  - TUBERCULOSIS TEST POSITIVE [None]
  - ULTRASOUND DOPPLER [None]
  - ULTRASOUND SCAN ABNORMAL [None]
  - WEIGHT GAIN POOR [None]
  - WHITE BLOOD CELL DISORDER [None]
